FAERS Safety Report 5358331-7 (Version None)
Quarter: 2007Q2

REPORT INFORMATION
  Report Type: 
  Country: None (occurrence: None)
  Receive Date: 20070614
  Receipt Date: 20070614
  Transmission Date: 20071010
  Serious: Yes (Life-Threatening, Other)
  Sender: FDA-Public Use
  Company Number: None

PATIENT
  Sex: Male
  Weight: 113.3993 kg

DRUGS (1)
  1. PREFILLED SALINE SYRINGE [Suspect]
     Dates: start: 20060418, end: 20060418

REACTIONS (7)
  - CARDIO-RESPIRATORY ARREST [None]
  - DYSGEUSIA [None]
  - INFUSION RELATED REACTION [None]
  - LOSS OF CONSCIOUSNESS [None]
  - SYNCOPE [None]
  - THERAPEUTIC PRODUCT CONTAMINATION [None]
  - WRONG TECHNIQUE IN DRUG USAGE PROCESS [None]
